FAERS Safety Report 5428883-7 (Version None)
Quarter: 2007Q3

REPORT INFORMATION
  Report Type: 
  Country: None (occurrence: None)
  Receive Date: 20070827
  Receipt Date: 20070816
  Transmission Date: 20080115
  Serious: Yes (Other)
  Sender: FDA-Public Use
  Company Number: 2007BI017338

PATIENT
  Sex: Female

DRUGS (1)
  1. NATALIZUMAB (NATALIZUMAB) [Suspect]
     Indication: MULTIPLE SCLEROSIS
     Dosage: 300 MG; QM; IV
     Route: 042

REACTIONS (1)
  - ANGIOEDEMA [None]
